FAERS Safety Report 15756490 (Version 1)
Quarter: 2018Q4

REPORT INFORMATION
  Report Type: Spontaneous
  Country: US (occurrence: US)
  Receive Date: 20181218
  Receipt Date: 20181218
  Transmission Date: 20190205
  Serious: No
  Sender: FDA-Public Use
  Company Number: None

PATIENT

DRUGS (2)
  1. METHOTREXATE 15MG [Suspect]
     Active Substance: METHOTREXATE
  2. METHOTREXATE 15MG [Suspect]
     Active Substance: METHOTREXATE

REACTIONS (7)
  - Product prescribing error [None]
  - Product dispensing error [None]
  - Pancytopenia [None]
  - Wrong dose [None]
  - Mucosal inflammation [None]
  - Incorrect dose administered [None]
  - Oesophagitis [None]
